FAERS Safety Report 10969811 (Version 1)
Quarter: 2015Q1

REPORT INFORMATION
  Report Type: Spontaneous
  Country: US (occurrence: US)
  Receive Date: 20150331
  Receipt Date: 20150331
  Transmission Date: 20150721
  Serious: No
  Sender: FDA-Public Use
  Company Number: US-PFIZER INC-2015107215

PATIENT
  Age: 65 Year
  Sex: Female
  Weight: 73 kg

DRUGS (1)
  1. NEURONTIN [Suspect]
     Active Substance: GABAPENTIN
     Indication: NEUROPATHY PERIPHERAL
     Dosage: 300 MG, 3X/DAY
     Route: 048

REACTIONS (3)
  - Drug effect incomplete [Not Recovered/Not Resolved]
  - Paraesthesia [Not Recovered/Not Resolved]
  - Wheelchair user [Unknown]
